FAERS Safety Report 10791107 (Version 4)
Quarter: 2015Q1

REPORT INFORMATION
  Report Type: Spontaneous
  Country: JP (occurrence: JP)
  Receive Date: 20150212
  Receipt Date: 20150225
  Transmission Date: 20150721
  Serious: Yes (Hospitalization, Other)
  Sender: FDA-Public Use
  Company Number: JP-009507513-1502JPN003257

PATIENT
  Age: 11 Day
  Sex: Female
  Weight: 2.42 kg

DRUGS (7)
  1. DIAZOXIDE CAPSULES 25 MG ^MSD^ [Suspect]
     Active Substance: DIAZOXIDE
     Dosage: 6.7 MG, TID, CRUSHING OF CAPSULE
     Route: 048
     Dates: start: 20141019, end: 20141020
  2. DEXTROSE. [Concomitant]
     Active Substance: DEXTROSE
     Indication: HYPOGLYCAEMIA
     Dosage: DAILY DOSE UNKNOWN
     Route: 041
     Dates: start: 20141007, end: 20141105
  3. ZINC SULFATE [Concomitant]
     Active Substance: ZINC SULFATE\ZINC SULFATE ANHYDROUS
     Indication: HYPOZINCAEMIA
     Dosage: 0.3 ML, QD
     Route: 048
     Dates: start: 20141015, end: 20141216
  4. DIAZOXIDE CAPSULES 25 MG ^MSD^ [Suspect]
     Active Substance: DIAZOXIDE
     Indication: HYPOGLYCAEMIA
     Dosage: 5 MG, TID, CRUSHING OF CAPSULE
     Route: 048
     Dates: start: 20141014, end: 20141018
  5. FERROMIA [Concomitant]
     Active Substance: FERROUS CITRATE
     Indication: ANAEMIA
     Dosage: 10 MG, QD
     Route: 048
     Dates: start: 20141015, end: 20141216
  6. NOVO HEPARIN [Concomitant]
     Active Substance: HEPARIN SODIUM
     Indication: PROPHYLAXIS
     Dosage: DAILY DOSE UNKNOWN
     Route: 042
     Dates: start: 20141007, end: 20141106
  7. KAYTWO [Concomitant]
     Active Substance: MENATETRENONE
     Indication: PROPHYLAXIS
     Dosage: 1 ML, QW
     Route: 048
     Dates: start: 20141015, end: 20141210

REACTIONS (1)
  - Cardiac failure congestive [Recovered/Resolved]

NARRATIVE: CASE EVENT DATE: 20141018
